FAERS Safety Report 14666747 (Version 1)
Quarter: 2018Q1

REPORT INFORMATION
  Report Type: Spontaneous
  Country: US (occurrence: US)
  Receive Date: 20180322
  Receipt Date: 20180322
  Transmission Date: 20180509
  Serious: No
  Sender: FDA-Public Use
  Company Number: US-CELGENEUS-USA-20180305672

PATIENT
  Sex: Female

DRUGS (1)
  1. OTEZLA [Suspect]
     Active Substance: APREMILAST
     Indication: PSORIASIS
     Dosage: 60 MILLIGRAM
     Route: 048
     Dates: start: 20161201

REACTIONS (6)
  - Nasopharyngitis [Unknown]
  - Nasopharyngitis [Unknown]
  - Sinusitis [Unknown]
  - Nasopharyngitis [Unknown]
  - Skin discolouration [Unknown]
  - Sinusitis [Unknown]

NARRATIVE: CASE EVENT DATE: 2016
